FAERS Safety Report 5464757-3 (Version None)
Quarter: 2007Q3

REPORT INFORMATION
  Report Type: 
  Country: None (occurrence: None)
  Receive Date: 20070921
  Receipt Date: 20070910
  Transmission Date: 20080115
  Serious: Yes (Other)
  Sender: FDA-Public Use
  Company Number: US-PFIZER INC-2007058761

PATIENT
  Sex: Female
  Weight: 52.272 kg

DRUGS (5)
  1. CHANTIX [Suspect]
     Indication: SMOKING CESSATION THERAPY
     Dates: start: 20070709, end: 20070801
  2. PREDNISONE [Suspect]
     Indication: RASH
  3. ROXICODONE [Concomitant]
  4. OXYCONTIN [Concomitant]
  5. ZOLOFT [Concomitant]

REACTIONS (11)
  - DERMATITIS CONTACT [None]
  - DRUG ADMINISTRATION ERROR [None]
  - FATIGUE [None]
  - HYPERSENSITIVITY [None]
  - IMMUNE SYSTEM DISORDER [None]
  - LIP SWELLING [None]
  - NAUSEA [None]
  - OEDEMA PERIPHERAL [None]
  - RASH [None]
  - SPINAL FUSION SURGERY [None]
  - SWELLING FACE [None]
